FAERS Safety Report 24397836 (Version 1)
Quarter: 2024Q4

REPORT INFORMATION
  Report Type: Spontaneous
  Country: FR (occurrence: FR)
  Receive Date: 20241004
  Receipt Date: 20241004
  Transmission Date: 20250115
  Serious: Yes (Life-Threatening, Hospitalization)
  Sender: MYLAN
  Company Number: None

PATIENT
  Age: 18 Year
  Sex: Female
  Weight: 45 kg

DRUGS (12)
  1. GEMCITABINE [Suspect]
     Active Substance: GEMCITABINE
     Indication: Hodgkin^s disease stage III
     Dosage: 1600 MILLIGRAM, CYCLE (TOTAL DOSE: 6358 MG)
     Route: 042
     Dates: start: 20240119, end: 20240216
  2. KEYTRUDA [Suspect]
     Active Substance: PEMBROLIZUMAB
     Indication: Hodgkin^s disease stage III
     Dosage: 200 MILLIGRAM, CYCLE (TOTAL DOSE: 800 MG)
     Route: 042
     Dates: start: 20240119, end: 20240402
  3. VINCRISTINE SULFATE [Suspect]
     Active Substance: VINCRISTINE SULFATE
     Indication: Hodgkin^s disease stage III
     Dosage: 1.3 MILLIGRAM, CYCLE (TOTAL DOSE: 9.32 MG)
     Route: 042
     Dates: start: 20230512, end: 20230904
  4. BLEOMYCIN SULFATE [Suspect]
     Active Substance: BLEOMYCIN SULFATE
     Indication: Hodgkin^s disease stage III
     Dosage: 57.9 MILLIGRAM (TOTAL DOSE)
     Route: 042
     Dates: start: 20230512, end: 20230719
  5. NAVELBINE [Suspect]
     Active Substance: VINORELBINE TARTRATE
     Indication: Hodgkin^s disease stage III
     Dosage: 31.6 MILLIGRAM, CYCLE (TOTAL DOSE: 128 MG)
     Route: 042
     Dates: start: 20240119, end: 20240216
  6. OXALIPLATIN [Suspect]
     Active Substance: OXALIPLATIN
     Indication: Hodgkin^s disease stage III
     Dosage: 205 MILLIGRAM, CYCLE (TOTAL DOSE: 620 MG)
     Route: 042
     Dates: start: 20240429, end: 20240625
  7. CYCLOPHOSPHAMIDE [Suspect]
     Active Substance: CYCLOPHOSPHAMIDE
     Indication: Hodgkin^s disease stage III
     Dosage: 1800 MILLIGRAM, CYCLE (TOTAL DOSE: 11060 MG)
     Route: 042
     Dates: start: 20230505, end: 20230828
  8. DEXAMETHASONE SODIUM PHOSPHATE [Suspect]
     Active Substance: DEXAMETHASONE SODIUM PHOSPHATE
     Indication: Hodgkin^s disease stage III
     Dosage: 40 MILLIGRAM, CYCLE (TOTAL DOSE: 480 MG)
     Route: 048
     Dates: start: 20240429, end: 20240628
  9. CYTARABINE [Suspect]
     Active Substance: CYTARABINE
     Indication: Hodgkin^s disease stage III
     Dosage: 3200 MILLIGRAM, CYCLE (TOTAL DOSE: 19100 MG)
     Route: 042
     Dates: start: 20240430, end: 20240626
  10. ETOPOPHOS [Suspect]
     Active Substance: ETOPOSIDE PHOSPHATE
     Indication: Hodgkin^s disease stage III
     Dosage: 290 MILLIGRAM, CYCLE (TOTAL DOSE: 5280 MG)
     Route: 042
     Dates: start: 20230505, end: 20230830
  11. ADCETRIS [Suspect]
     Active Substance: BRENTUXIMAB VEDOTIN
     Indication: Hodgkin^s disease stage III
     Dosage: 104.4 MILLIGRAM, CYCLE (TOTAL DOSE: 310 MG)
     Route: 042
     Dates: start: 20240429, end: 20240625
  12. DOXORUBICIN HYDROCHLORIDE [Suspect]
     Active Substance: DOXORUBICIN HYDROCHLORIDE
     Indication: Hodgkin^s disease stage III
     Dosage: 52 MILLIGRAM, CYCLE (TOTAL DOSE: 403 MG)
     Route: 042
     Dates: start: 20230505, end: 20240216

REACTIONS (2)
  - Condition aggravated [Recovered/Resolved]
  - Cardiac failure [Recovered/Resolved]

NARRATIVE: CASE EVENT DATE: 20240229
